FAERS Safety Report 5369911-7 (Version None)
Quarter: 2007Q2

REPORT INFORMATION
  Report Type: 
  Country: None (occurrence: None)
  Receive Date: 20070621
  Receipt Date: 20070615
  Transmission Date: 20071010
  Serious: Yes (Hospitalization, Other)
  Sender: FDA-Public Use
  Company Number: 150-C5013-07020498

PATIENT
  Age: 87 Year
  Sex: Female
  Weight: 51 kg

DRUGS (9)
  1. LENALIDOMIDE                  CC-5013 [Suspect]
     Indication: MYELODYSPLASTIC SYNDROME
     Dosage: SEE IMAGE; ORAL
     Route: 048
     Dates: end: 20050929
  2. LENALIDOMIDE                  CC-5013 [Suspect]
     Indication: MYELODYSPLASTIC SYNDROME
     Dosage: SEE IMAGE; ORAL
     Route: 048
     Dates: start: 20050930, end: 20060131
  3. LENALIDOMIDE                  CC-5013 [Suspect]
     Indication: MYELODYSPLASTIC SYNDROME
     Dosage: SEE IMAGE; ORAL
     Route: 048
     Dates: start: 20060201
  4. WARFARIN SODIUM [Suspect]
     Indication: PULMONARY EMBOLISM
     Dosage: ORAL
     Route: 048
     Dates: start: 19980101
  5. OMEPRAZOLE [Suspect]
     Indication: GASTRITIS
     Dosage: ORAL
     Route: 048
     Dates: start: 20050101
  6. FUROSEMIDE (FUROSEMIDE) (CAPSULES) [Concomitant]
  7. METOPROLOL (METOPROLOL) (TABLETS) [Concomitant]
  8. NITROMEX (GLYCERYL TRINITRATE) (TABLETS) [Concomitant]
  9. LEVOTHYROXINE SODIUM [Concomitant]

REACTIONS (1)
  - MYOCARDIAL INFARCTION [None]
